FAERS Safety Report 10196683 (Version 3)
Quarter: 2014Q3

REPORT INFORMATION
  Report Type: Spontaneous
  Country: SE (occurrence: SE)
  Receive Date: 20140527
  Receipt Date: 20140715
  Transmission Date: 20150326
  Serious: Yes (Life-Threatening, Hospitalization, Other)
  Sender: FDA-Public Use
  Company Number: SE-UCBSA-121959

PATIENT
  Sex: Female

DRUGS (1)
  1. CIMZIA [Suspect]
     Active Substance: CERTOLIZUMAB PEGOL
     Dosage: DOSE UNKNOWN
     Route: 058

REACTIONS (4)
  - Cardiac arrest [Unknown]
  - Urticaria [Unknown]
  - Anaphylactic shock [Unknown]
  - Obstructive airways disorder [Unknown]
